FAERS Safety Report 23841354 (Version 2)
Quarter: 2024Q2

REPORT INFORMATION
  Report Type: Spontaneous
  Country: US (occurrence: US)
  Receive Date: 20240510
  Receipt Date: 20240530
  Transmission Date: 20240716
  Serious: No
  Sender: FDA-Public Use
  Company Number: US-MSNLABS-2024MSNSPO00995

PATIENT

DRUGS (4)
  1. ROSUVASTATIN [Suspect]
     Active Substance: ROSUVASTATIN
     Indication: Blood cholesterol increased
     Dosage: PINK ROUND TABLET WITH R10 IMPRINTED ON THE TABLET
     Route: 048
     Dates: start: 20240401, end: 20240417
  2. Topro XL [Concomitant]
     Indication: Blood pressure measurement
     Dosage: ONCE A DAY SINCE LAST 20 YEARS
     Route: 065
  3. Topro XL [Concomitant]
     Dosage: 18-19 YEARS
     Route: 065
  4. VITAMIN D NOS [Concomitant]
     Active Substance: CHOLECALCIFEROL\ERGOCALCIFEROL
     Indication: Product used for unknown indication
     Dosage: 2000-4000, EVERY DAY
     Route: 065

REACTIONS (10)
  - Abdominal discomfort [Unknown]
  - Flatulence [Unknown]
  - Palpitations [Unknown]
  - Chest pain [Unknown]
  - Paraesthesia [Not Recovered/Not Resolved]
  - Hypoaesthesia [Not Recovered/Not Resolved]
  - Hypertension [Unknown]
  - Paraesthesia oral [Unknown]
  - Hypoaesthesia oral [Unknown]
  - Dyspnoea [Unknown]

NARRATIVE: CASE EVENT DATE: 20240408
